FAERS Safety Report 26119664 (Version 1)
Quarter: 2025Q4

REPORT INFORMATION
  Report Type: Spontaneous
  Country: JP (occurrence: JP)
  Receive Date: 20251204
  Receipt Date: 20251204
  Transmission Date: 20260117
  Serious: Yes (Hospitalization, Other)
  Sender: AMNEAL
  Company Number: JP-AMNEAL PHARMACEUTICALS-2025-AMRX-04615

PATIENT
  Age: 15 Year
  Sex: Female

DRUGS (3)
  1. GUANFACINE [Suspect]
     Active Substance: GUANFACINE
     Indication: Attention deficit hyperactivity disorder
     Dosage: 348 MG
     Route: 065
  2. GUANFACINE [Suspect]
     Active Substance: GUANFACINE
     Dosage: 126 MG
     Route: 065
  3. GUANFACINE [Suspect]
     Active Substance: GUANFACINE
     Dosage: 1,344 MG
     Route: 065

REACTIONS (4)
  - Stress cardiomyopathy [Recovering/Resolving]
  - Respiratory failure [Recovering/Resolving]
  - Pulmonary oedema [Recovering/Resolving]
  - Overdose [Unknown]
